FAERS Safety Report 7962545-7 (Version None)
Quarter: 2011Q4

REPORT INFORMATION
  Report Type: 
  Country: None (occurrence: None)
  Receive Date: 20111207
  Receipt Date: 20111128
  Transmission Date: 20120403
  Serious: Yes (Other)
  Sender: FDA-Public Use
  Company Number: TR-GLAXOSMITHKLINE-B0766887A

PATIENT
  Age: 65 Year
  Sex: Female

DRUGS (1)
  1. WELLBUTRIN [Suspect]
     Indication: DEPRESSION
     Dosage: 150MG PER DAY
     Route: 048
     Dates: start: 20111101, end: 20111101

REACTIONS (5)
  - HYPOKINESIA [None]
  - PARKINSONISM [None]
  - APATHY [None]
  - ESSENTIAL TREMOR [None]
  - TREMOR [None]
